FAERS Safety Report 4613251-8 (Version None)
Quarter: 2005Q1

REPORT INFORMATION
  Report Type: 
  Country: None (occurrence: None)
  Receive Date: 20050315
  Receipt Date: 20050302
  Transmission Date: 20050727
  Serious: Yes (Hospitalization, Other)
  Sender: FDA-Public Use
  Company Number: 2005-02-0586

PATIENT
  Age: 78 Year
  Sex: Female

DRUGS (6)
  1. CLARITIN [Suspect]
     Indication: SWELLING FACE
     Dosage: 10 MG ORAL
     Route: 048
  2. BISULEPIN [Concomitant]
  3. CALENDULA [Concomitant]
  4. ACETYLSALICYLIC ACID SRT [Concomitant]
  5. INDAPAMIDE [Concomitant]
  6. METOPROLOL TARTRATE [Concomitant]

REACTIONS (7)
  - DRUG INEFFECTIVE [None]
  - JUGULAR VEIN THROMBOSIS [None]
  - MEDIASTINUM NEOPLASM [None]
  - PARANEOPLASTIC SYNDROME [None]
  - SUBCLAVIAN VEIN THROMBOSIS [None]
  - SUPERIOR VENA CAVAL OCCLUSION [None]
  - VENA CAVA THROMBOSIS [None]
